FAERS Safety Report 9734983 (Version 1)
Quarter: 2013Q4

REPORT INFORMATION
  Report Type: Report from Study
  Country: NL (occurrence: NL)
  Receive Date: 20131206
  Receipt Date: 20131206
  Transmission Date: 20140711
  Serious: Yes (Death, Hospitalization)
  Sender: FDA-Public Use
  Company Number: NL-ROCHE-1313233

PATIENT
  Age: 54 Year
  Sex: Female

DRUGS (5)
  1. BEVACIZUMAB [Suspect]
     Indication: BREAST CANCER METASTATIC
     Route: 042
     Dates: start: 20130411, end: 20131106
  2. PACLITAXEL [Suspect]
     Indication: BREAST CANCER METASTATIC
     Route: 042
     Dates: start: 20130411, end: 20130724
  3. ZOMETA [Concomitant]
     Route: 065
     Dates: start: 20130425
  4. AMLODIPINE [Concomitant]
     Route: 065
     Dates: start: 20130529
  5. PANTOZOL (NETHERLANDS) [Concomitant]
     Route: 065
     Dates: start: 20130111

REACTIONS (6)
  - Disease progression [Fatal]
  - Jaundice [Unknown]
  - Abdominal discomfort [Unknown]
  - Hepatic enzyme increased [Unknown]
  - Hepatomegaly [Unknown]
  - Hepatic steatosis [Unknown]
